FAERS Safety Report 21856990 (Version 2)
Quarter: 2023Q1

REPORT INFORMATION
  Report Type: Spontaneous
  Country: IT (occurrence: IT)
  Receive Date: 20230113
  Receipt Date: 20230119
  Transmission Date: 20230418
  Serious: Yes (Hospitalization)
  Sender: FDA-Public Use
  Company Number: IT-NOVOPROD-1010208

PATIENT
  Age: 74 Year
  Sex: Male
  Weight: 107 kg

DRUGS (2)
  1. INSULIN ASPART [Suspect]
     Active Substance: INSULIN ASPART
     Indication: Type 2 diabetes mellitus
     Dosage: 75 IU, QD
     Route: 058
     Dates: start: 20220627, end: 20221205
  2. INSULIN ASPART [Suspect]
     Active Substance: INSULIN ASPART
     Dosage: 50 IU, QD
     Route: 058

REACTIONS (1)
  - Loss of consciousness [Recovered/Resolved]

NARRATIVE: CASE EVENT DATE: 20221204
